FAERS Safety Report 6966554 (Version 3)
Quarter: 2013Q1

REPORT INFORMATION
  Report Type: Spontaneous
  Country: US (occurrence: CA)
  Receive Date: 20090410
  Receipt Date: 20130319
  Transmission Date: 20140127
  Serious: No
  Sender: FDA-Public Use
  Company Number: CA-B.I. PHARMACEUTICALS,INC./RIDGEFIELD-2009-BP-04427BP

PATIENT
  Sex: Female

DRUGS (2)
  1. MIRAPEX [Suspect]
     Indication: RESTLESS LEGS SYNDROME
     Dates: start: 20021002, end: 20050302
  2. MIRAPEX [Suspect]
     Indication: PERIODIC LIMB MOVEMENT DISORDER

REACTIONS (9)
  - Pathological gambling [Recovered/Resolved]
  - Depression [Unknown]
  - Suicidal ideation [Unknown]
  - Hyperphagia [Recovered/Resolved]
  - Weight increased [Unknown]
  - Stress [Unknown]
  - Personality change [Unknown]
  - Euphoric mood [Unknown]
  - Compulsive shopping [Recovered/Resolved]
